APPROVED DRUG PRODUCT: ULTRAVIST 240
Active Ingredient: IOPROMIDE
Strength: 49.9%
Dosage Form/Route: INJECTABLE;INJECTION
Application: N020220 | Product #003
Applicant: BAYER HEALTHCARE PHARMACEUTICALS INC
Approved: May 10, 1995 | RLD: Yes | RS: No | Type: DISCN